FAERS Safety Report 21862871 (Version 2)
Quarter: 2023Q1

REPORT INFORMATION
  Report Type: Spontaneous
  Country: CH (occurrence: CH)
  Receive Date: 20230114
  Receipt Date: 20230123
  Transmission Date: 20230418
  Serious: Yes (Other)
  Sender: FDA-Public Use
  Company Number: CH-TEVA-2023-CH-2843935

PATIENT
  Sex: Male

DRUGS (3)
  1. DOCETAXEL [Suspect]
     Active Substance: DOCETAXEL
     Indication: Product used for unknown indication
     Dosage: 140MG/7ML, CONCENTRATION OF DOCETAXEL FROM THE SOLUTION ADMINISTERED: 0.4MG/ML
     Route: 065
     Dates: start: 20221128
  2. DEXAMETHASONE [Suspect]
     Active Substance: DEXAMETHASONE
     Indication: Product used for unknown indication
     Route: 065
  3. CLEMASTINE FUMARATE [Suspect]
     Active Substance: CLEMASTINE FUMARATE
     Indication: Product used for unknown indication
     Route: 065

REACTIONS (13)
  - Infusion related reaction [Unknown]
  - Cardiac arrest [Unknown]
  - Unresponsive to stimuli [Recovered/Resolved]
  - Chronic kidney disease [Unknown]
  - Anaphylactic reaction [Recovered/Resolved]
  - Oxygen saturation decreased [Recovered/Resolved]
  - Hypoacusis [Recovered/Resolved]
  - Chronic obstructive pulmonary disease [Unknown]
  - Emphysema [Unknown]
  - Sleep apnoea syndrome [Unknown]
  - Dyspnoea [Unknown]
  - Nausea [Unknown]
  - Dyspnoea [Recovered/Resolved]
